FAERS Safety Report 21689550 (Version 2)
Quarter: 2022Q4

REPORT INFORMATION
  Report Type: Report from Study
  Country: IT (occurrence: IT)
  Receive Date: 20221206
  Receipt Date: 20221229
  Transmission Date: 20230113
  Serious: Yes (Hospitalization, Other)
  Sender: FDA-Public Use
  Company Number: None

PATIENT
  Age: 65 Year
  Sex: Female

DRUGS (2)
  1. PAXLOVID [Interacting]
     Active Substance: NIRMATRELVIR\RITONAVIR
     Indication: COVID-19 treatment
     Dosage: AS PRESCRIBED, TWICE A DAY
     Route: 048
     Dates: start: 20221009, end: 20221013
  2. TACROLIMUS [Interacting]
     Active Substance: TACROLIMUS
     Dosage: 8.5 MG, DAILY
     Route: 048
     Dates: start: 202205, end: 20221013

REACTIONS (3)
  - Product prescribing error [Recovering/Resolving]
  - Drug interaction [Recovering/Resolving]
  - Immunosuppressant drug level increased [Recovering/Resolving]

NARRATIVE: CASE EVENT DATE: 20221009
